FAERS Safety Report 7924652-4 (Version None)
Quarter: 2011Q4

REPORT INFORMATION
  Report Type: 
  Country: None (occurrence: None)
  Receive Date: 20111117
  Receipt Date: 20110324
  Transmission Date: 20120403
  Serious: No
  Sender: FDA-Public Use
  Company Number: US-AMGEN-USASP2011016094

PATIENT
  Age: 59 Year

DRUGS (6)
  1. ENBREL [Suspect]
     Indication: RHEUMATOID ARTHRITIS
     Dosage: 25 MG, 2 TIMES/WK
  2. CALCIUM D                          /00944201/ [Concomitant]
     Dosage: 650 MG, UNK
  3. FISH OIL [Concomitant]
  4. TYLENOL-500 [Concomitant]
     Dosage: 650 MG, UNK
  5. MULTIVITAMIN                       /00097801/ [Concomitant]
  6. ATENOLOL [Concomitant]
     Dosage: 25 MG, UNK

REACTIONS (1)
  - EPISTAXIS [None]
